FAERS Safety Report 15825375 (Version 1)
Quarter: 2019Q1

REPORT INFORMATION
  Report Type: Report from Study
  Country: None (occurrence: CA)
  Receive Date: 20190115
  Receipt Date: 20190115
  Transmission Date: 20190417
  Serious: Yes (Hospitalization, Other)
  Sender: FDA-Public Use
  Company Number: CA-ABBVIE-18K-028-2583855-00

PATIENT
  Sex: Male

DRUGS (2)
  1. HUMIRA [Suspect]
     Active Substance: ADALIMUMAB
     Indication: CROHN^S DISEASE
     Route: 058
     Dates: start: 20110727
  2. REMICADE [Concomitant]
     Active Substance: INFLIXIMAB
     Indication: PRODUCT USED FOR UNKNOWN INDICATION

REACTIONS (9)
  - Crohn^s disease [Not Recovered/Not Resolved]
  - Discomfort [Not Recovered/Not Resolved]
  - Anal fistula [Unknown]
  - Nasopharyngitis [Not Recovered/Not Resolved]
  - Swelling [Unknown]
  - Incorrect dose administered [Recovering/Resolving]
  - Anal abscess [Unknown]
  - Fluctuance [Unknown]
  - Perineal induration [Unknown]

NARRATIVE: CASE EVENT DATE: 2018
